FAERS Safety Report 24177306 (Version 1)
Quarter: 2024Q3

REPORT INFORMATION
  Report Type: Spontaneous
  Country: US (occurrence: US)
  Receive Date: 20240806
  Receipt Date: 20240806
  Transmission Date: 20241017
  Serious: No
  Sender: JOHNSON AND JOHNSON
  Company Number: US-JNJFOC-20240779376

PATIENT
  Age: 22 Year
  Sex: Male

DRUGS (5)
  1. RISPERDAL [Suspect]
     Active Substance: RISPERIDONE
     Indication: Psychotic disorder
     Dosage: 2 MG AT BEDTIME
     Route: 048
     Dates: start: 20140730
  2. RISPERDAL [Suspect]
     Active Substance: RISPERIDONE
     Indication: Hallucination, auditory
     Dosage: LOWER DOSE OF 1 MG TWICE DAILY
     Route: 048
     Dates: start: 20140903
  3. RISPERDAL [Suspect]
     Active Substance: RISPERIDONE
     Indication: Paranoia
     Dosage: 1 MG AT MORNING AND 2 MG AT NIGHT
     Route: 048
     Dates: start: 20140906
  4. RISPERDAL [Suspect]
     Active Substance: RISPERIDONE
     Dosage: 1 MG 3 TIMES DAILY
     Route: 048
     Dates: start: 201409
  5. RISPERIDONE [Suspect]
     Active Substance: RISPERIDONE
     Indication: Product used for unknown indication
     Route: 065

REACTIONS (6)
  - Musculoskeletal stiffness [Unknown]
  - Drooling [Unknown]
  - Fatigue [Unknown]
  - Drug ineffective [Unknown]
  - Treatment noncompliance [Unknown]
  - Off label use [Unknown]

NARRATIVE: CASE EVENT DATE: 20140101
